FAERS Safety Report 19025651 (Version 1)
Quarter: 2021Q1

REPORT INFORMATION
  Report Type: Spontaneous
  Country: US (occurrence: US)
  Receive Date: 20210318
  Receipt Date: 20210318
  Transmission Date: 20210420
  Serious: Yes (Hospitalization, Other)
  Sender: FDA-Public Use
  Company Number: US-SA-2021SA081956

PATIENT
  Sex: Male

DRUGS (2)
  1. AMBIEN [Suspect]
     Active Substance: ZOLPIDEM TARTRATE
     Indication: SLEEP DISORDER
     Dosage: 20 MG
     Route: 065
     Dates: start: 2000
  2. AMBIEN CR [Suspect]
     Active Substance: ZOLPIDEM TARTRATE
     Indication: SLEEP DISORDER
     Dosage: 6.25 MG
     Dates: start: 2000

REACTIONS (5)
  - Mania [Unknown]
  - Therapy cessation [Unknown]
  - Withdrawal syndrome [Unknown]
  - Circadian rhythm sleep disorder [Unknown]
  - Hallucination [Unknown]
